FAERS Safety Report 17442766 (Version 2)
Quarter: 2020Q1

REPORT INFORMATION
  Report Type: Report from Study
  Country: None (occurrence: CA)
  Receive Date: 20200220
  Receipt Date: 20200312
  Transmission Date: 20200409
  Serious: Yes (Other)
  Sender: FDA-Public Use
  Company Number: CA-ABBVIE-20K-028-3282772-00

PATIENT
  Sex: Male

DRUGS (2)
  1. HUMIRA [Suspect]
     Active Substance: ADALIMUMAB
     Route: 058
     Dates: start: 20200213
  2. HUMIRA [Suspect]
     Active Substance: ADALIMUMAB
     Indication: HIDRADENITIS
     Route: 058
     Dates: start: 20150917, end: 201908

REACTIONS (7)
  - Dermal cyst [Unknown]
  - Skin lesion [Unknown]
  - Hidradenitis [Not Recovered/Not Resolved]
  - Middle insomnia [Unknown]
  - Drug ineffective [Unknown]
  - Mental disorder [Unknown]
  - Wound secretion [Not Recovered/Not Resolved]
